FAERS Safety Report 11222067 (Version 4)
Quarter: 2016Q1

REPORT INFORMATION
  Report Type: Spontaneous
  Country: JP (occurrence: JP)
  Receive Date: 20150626
  Receipt Date: 20160322
  Transmission Date: 20160525
  Serious: Yes (Life-Threatening, Hospitalization)
  Sender: FDA-Public Use
  Company Number: JP-ACTELION-A-CH2015-119432

PATIENT
  Age: 9 Year
  Sex: Female

DRUGS (10)
  1. PHENOBARBITAL. [Concomitant]
     Active Substance: PHENOBARBITAL
  2. EPOPROSTENOL ACT [Suspect]
     Active Substance: EPOPROSTENOL
     Indication: PULMONARY ARTERIAL HYPERTENSION
     Dosage: 18.1 NG/KG, PER MIN
     Route: 042
     Dates: start: 20140123
  3. FAMOTIDINE. [Concomitant]
     Active Substance: FAMOTIDINE
  4. BACLOFEN. [Concomitant]
     Active Substance: BACLOFEN
  5. MOSAPRIDE CITRATE [Concomitant]
     Active Substance: MOSAPRIDE CITRATE
  6. TRACLEER [Suspect]
     Active Substance: BOSENTAN
     Indication: PULMONARY ARTERIAL HYPERTENSION
     Route: 048
  7. SILDENAFIL. [Concomitant]
     Active Substance: SILDENAFIL
  8. DIAZEPAM. [Concomitant]
     Active Substance: DIAZEPAM
  9. CARBOCISTEINE [Concomitant]
     Active Substance: CARBOCYSTEINE
  10. DANTROLENE SODIUM. [Concomitant]
     Active Substance: DANTROLENE SODIUM

REACTIONS (5)
  - Bacteraemia [Recovered/Resolved]
  - C-reactive protein increased [Recovered/Resolved]
  - Device breakage [Recovered/Resolved]
  - Pyrexia [Recovered/Resolved]
  - Device related infection [Recovered/Resolved]

NARRATIVE: CASE EVENT DATE: 20150528
